FAERS Safety Report 12911098 (Version 1)
Quarter: 2016Q4

REPORT INFORMATION
  Report Type: Report from Study
  Country: US (occurrence: US)
  Receive Date: 20161104
  Receipt Date: 20161104
  Transmission Date: 20170207
  Serious: Yes (Death)
  Sender: FDA-Public Use
  Company Number: US-ASTRAZENECA-2015SE77003

PATIENT
  Age: 934 Month
  Sex: Male
  Weight: 115.2 kg

DRUGS (1)
  1. BRILINTA [Suspect]
     Active Substance: TICAGRELOR
     Indication: ACUTE CORONARY SYNDROME
     Route: 048
     Dates: start: 201507

REACTIONS (33)
  - Angina pectoris [Unknown]
  - Gait disturbance [Unknown]
  - Muscular weakness [Unknown]
  - Aortic valve incompetence [Unknown]
  - Essential hypertension [Unknown]
  - Peripheral vascular disorder [Unknown]
  - Pain in extremity [Unknown]
  - Ischaemic cardiomyopathy [Unknown]
  - Restless legs syndrome [Unknown]
  - Hypoaesthesia [Unknown]
  - Paraesthesia [Unknown]
  - Alopecia [Unknown]
  - Death [Fatal]
  - Limb discomfort [Unknown]
  - Fatigue [Unknown]
  - Gastrooesophageal reflux disease [Unknown]
  - Peptic ulcer [Unknown]
  - Staphylococcal infection [Unknown]
  - Mitral valve incompetence [Unknown]
  - Obstructive airways disorder [Unknown]
  - Tuberculosis [Unknown]
  - Vision blurred [Unknown]
  - Coronary artery disease [Unknown]
  - Thirst [Unknown]
  - Tricuspid valve incompetence [Unknown]
  - Enterococcal infection [Unknown]
  - Chronic obstructive pulmonary disease [Unknown]
  - Herpes zoster [Unknown]
  - Mitral valve calcification [Unknown]
  - Aortic arteriosclerosis [Unknown]
  - Dyspnoea [Not Recovered/Not Resolved]
  - Dizziness [Unknown]
  - Hyperlipidaemia [Unknown]

NARRATIVE: CASE EVENT DATE: 201507
